FAERS Safety Report 4709201-6 (Version None)
Quarter: 2005Q3

REPORT INFORMATION
  Report Type: 
  Country: None (occurrence: None)
  Receive Date: 20050706
  Receipt Date: 20050623
  Transmission Date: 20060218
  Serious: Yes (Hospitalization)
  Sender: FDA-Public Use
  Company Number: 430002E05DEU

PATIENT
  Age: 70 Year
  Sex: Male

DRUGS (2)
  1. NOVANTRONE [Suspect]
     Indication: CHRONIC LYMPHOCYTIC LEUKAEMIA
     Dosage: 19 MG
     Dates: start: 20050111, end: 20050309
  2. BENDAMUSTINE [Concomitant]
     Dosage: 95MG

REACTIONS (4)
  - CARDIOMYOPATHY [None]
  - CYANOSIS [None]
  - RHONCHI [None]
  - VENTRICULAR FAILURE [None]
